FAERS Safety Report 4263868-8 (Version None)
Quarter: 2004Q1

REPORT INFORMATION
  Report Type: 
  Country: None (occurrence: None)
  Receive Date: 20040102
  Receipt Date: 20031218
  Transmission Date: 20041129
  Serious: Yes (Hospitalization, Other)
  Sender: FDA-Public Use
  Company Number: US_031299545

PATIENT
  Age: 12 Week
  Sex: Male

DRUGS (2)
  1. CEFACLOR [Suspect]
     Indication: PROPHYLAXIS
     Dates: start: 20020903, end: 20021001
  2. CEFACLOR [Suspect]
     Indication: URINARY TRACT INFECTION
     Dates: start: 20020903, end: 20021001

REACTIONS (5)
  - BACTERIAL INFECTION [None]
  - BLOOD CREATININE INCREASED [None]
  - ENTEROCOCCAL SEPSIS [None]
  - HYDRONEPHROSIS [None]
  - PATHOGEN RESISTANCE [None]
